FAERS Safety Report 9017497 (Version 1)
Quarter: 2013Q1

REPORT INFORMATION
  Report Type: Spontaneous
  Country: US (occurrence: US)
  Receive Date: 20130117
  Receipt Date: 20130117
  Transmission Date: 20140127
  Serious: Yes (Hospitalization)
  Sender: FDA-Public Use
  Company Number: US-BAXTER-2013BAX002086

PATIENT
  Sex: Male

DRUGS (2)
  1. LACTATED RINGERS SOLUTION [Suspect]
     Indication: JOINT IRRIGATION
     Route: 065
     Dates: start: 201212, end: 201212
  2. SODIUM CHLORIDE [Suspect]
     Indication: JOINT IRRIGATION
     Route: 065
     Dates: start: 201212, end: 201212

REACTIONS (1)
  - Postoperative wound infection [Recovering/Resolving]
